FAERS Safety Report 13031299 (Version 1)
Quarter: 2016Q4

REPORT INFORMATION
  Report Type: Spontaneous
  Country: US (occurrence: US)
  Receive Date: 20161215
  Receipt Date: 20161215
  Transmission Date: 20170207
  Serious: No
  Sender: FDA-Public Use
  Company Number: US-GLAXOSMITHKLINE-US2016182165

PATIENT
  Age: 50 Year
  Sex: Male

DRUGS (2)
  1. VOLTAREN [Suspect]
     Active Substance: DICLOFENAC SODIUM
     Indication: BACK PAIN
     Dosage: UNK
     Dates: start: 201611, end: 20161203
  2. VOLTAREN [Suspect]
     Active Substance: DICLOFENAC SODIUM
     Indication: NECK PAIN
     Dosage: UNK
     Dates: start: 2015

REACTIONS (7)
  - Erythema [Recovering/Resolving]
  - Off label use [Unknown]
  - Skin exfoliation [Recovering/Resolving]
  - Wrong technique in product usage process [Unknown]
  - Product use issue [Unknown]
  - Local swelling [Recovering/Resolving]
  - Drug administered at inappropriate site [Unknown]

NARRATIVE: CASE EVENT DATE: 201611
